FAERS Safety Report 13398169 (Version 2)
Quarter: 2017Q2

REPORT INFORMATION
  Report Type: Spontaneous
  Country: JP (occurrence: JP)
  Receive Date: 20170403
  Receipt Date: 20170410
  Transmission Date: 20170830
  Serious: Yes (Other)
  Sender: FDA-Public Use
  Company Number: JP-PFIZER INC-2017137703

PATIENT
  Age: 58 Year
  Sex: Male

DRUGS (1)
  1. CARBOPLATIN. [Suspect]
     Active Substance: CARBOPLATIN
     Indication: GLIOBLASTOMA
     Dosage: 550 MG, UNK (306 MG VIA THE LEFT CAROTID ARTERY, REMAINING SOLUTION WAS INJECTED INTO OTHER REGIONS)

REACTIONS (8)
  - Visual impairment [Not Recovered/Not Resolved]
  - Angle closure glaucoma [Recovering/Resolving]
  - Eye movement disorder [Unknown]
  - Retinal detachment [Recovered/Resolved]
  - Papilloedema [Recovered/Resolved]
  - Exudative retinopathy [Recovered/Resolved]
  - Blindness unilateral [Not Recovered/Not Resolved]
  - Conjunctival oedema [Unknown]
